FAERS Safety Report 13996817 (Version 2)
Quarter: 2017Q4

REPORT INFORMATION
  Report Type: Report from Study
  Country: GB (occurrence: GB)
  Receive Date: 20170921
  Receipt Date: 20171004
  Transmission Date: 20180321
  Serious: Yes (Other)
  Sender: FDA-Public Use
  Company Number: GB-JNJFOC-20170122486

PATIENT
  Age: 29 Year
  Sex: Female

DRUGS (2)
  1. SIMPONI [Suspect]
     Active Substance: GOLIMUMAB
     Indication: PRODUCT USED FOR UNKNOWN INDICATION
     Dosage: PRE-FILLED PEN
     Route: 058
     Dates: start: 20170418
  2. SIMPONI [Suspect]
     Active Substance: GOLIMUMAB
     Indication: PRODUCT USED FOR UNKNOWN INDICATION
     Dosage: PRE-FILLED PEN
     Route: 058

REACTIONS (9)
  - Pyrexia [Recovering/Resolving]
  - Lethargy [Not Recovered/Not Resolved]
  - Urinary tract infection [Unknown]
  - Decreased immune responsiveness [Unknown]
  - Pain [Not Recovered/Not Resolved]
  - Drug ineffective [Unknown]
  - Feeling of body temperature change [Unknown]
  - Muscular weakness [Unknown]
  - Nasopharyngitis [Unknown]

NARRATIVE: CASE EVENT DATE: 2017
